FAERS Safety Report 21758690 (Version 1)
Quarter: 2022Q4

REPORT INFORMATION
  Report Type: Spontaneous
  Country: FR (occurrence: FR)
  Receive Date: 20221221
  Receipt Date: 20221221
  Transmission Date: 20230113
  Serious: Yes (Death, Congenital Anomaly)
  Sender: FDA-Public Use
  Company Number: None

PATIENT
  Age: 0 Year
  Sex: Female

DRUGS (2)
  1. FLUCONAZOLE [Suspect]
     Active Substance: FLUCONAZOLE
     Indication: Fungal infection
     Dosage: UNIT DOSE: 400MG; FREQ TIME: 1DAY; DURATION: 22 DAYS
     Dates: start: 20210623, end: 20210715
  2. MYCOPHENOLATE MOFETIL [Suspect]
     Active Substance: MYCOPHENOLATE MOFETIL
     Indication: Product used for unknown indication
     Route: 065

REACTIONS (2)
  - Anencephaly [Fatal]
  - Stillbirth [Fatal]

NARRATIVE: CASE EVENT DATE: 20220131
